FAERS Safety Report 9917929 (Version 1)
Quarter: 2014Q1

REPORT INFORMATION
  Report Type: Report from Study
  Country: ID (occurrence: ID)
  Receive Date: 20140222
  Receipt Date: 20140222
  Transmission Date: 20141002
  Serious: Yes (Death)
  Sender: FDA-Public Use
  Company Number: ID-ROCHE-1353889

PATIENT
  Age: 27 Year
  Sex: Female

DRUGS (1)
  1. AVASTIN [Suspect]
     Indication: COLORECTAL CANCER
     Route: 065
     Dates: start: 20110128

REACTIONS (1)
  - Death [Fatal]
